FAERS Safety Report 7471568-6 (Version None)
Quarter: 2011Q2

REPORT INFORMATION
  Report Type: 
  Country: None (occurrence: None)
  Receive Date: 20110511
  Receipt Date: 20110412
  Transmission Date: 20111010
  Serious: Yes (Hospitalization, Other)
  Sender: FDA-Public Use
  Company Number: US-BAYER-201027027NA

PATIENT
  Age: 31 Year
  Sex: Female
  Weight: 77.098 kg

DRUGS (3)
  1. METFORMIN HCL [Concomitant]
     Dosage: 500 MG, UNK
  2. YASMIN [Suspect]
     Indication: ENDOMETRIOSIS
     Dosage: UNK
     Route: 048
     Dates: start: 20050601, end: 20091101
  3. DROSPIRENONE AND ETHINYL ESTRADIOL [Suspect]
     Indication: ENDOMETRIOSIS
     Dosage: UNK
     Route: 048
     Dates: start: 20050601, end: 20091101

REACTIONS (7)
  - STRESS [None]
  - DEPRESSED MOOD [None]
  - DIPLOPIA [None]
  - DEEP VEIN THROMBOSIS [None]
  - INTRACRANIAL VENOUS SINUS THROMBOSIS [None]
  - HEADACHE [None]
  - PAIN [None]
